FAERS Safety Report 6510160-4 (Version None)
Quarter: 2009Q4

REPORT INFORMATION
  Report Type: 
  Country: None (occurrence: None)
  Receive Date: 20091222
  Receipt Date: 20091201
  Transmission Date: 20100525
  Serious: Yes (Hospitalization, Other)
  Sender: FDA-Public Use
  Company Number: US-BAYER-200917213BCC

PATIENT
  Age: 71 Year
  Sex: Female

DRUGS (10)
  1. ASPIRIN [Suspect]
     Indication: CEREBROVASCULAR ACCIDENT PROPHYLAXIS
     Route: 065
     Dates: start: 20040101
  2. ASPIRIN [Suspect]
     Route: 065
  3. PLAVIX [Suspect]
     Indication: CEREBROVASCULAR ACCIDENT PROPHYLAXIS
     Dosage: TOTAL DAILY DOSE: 75 MG  UNIT DOSE: 75 MG
     Route: 048
     Dates: start: 20040101
  4. ALEVE (CAPLET) [Suspect]
     Indication: INTERVERTEBRAL DISC DEGENERATION
     Route: 065
  5. KLONOPIN [Concomitant]
     Indication: CONVULSION PROPHYLAXIS
     Dosage: UNIT DOSE: 0.5 MG
     Route: 065
  6. SYNTHROID [Concomitant]
     Indication: HYPOTHYROIDISM
     Route: 065
  7. VASOTEC [Concomitant]
     Indication: BLOOD PRESSURE ABNORMAL
     Route: 065
  8. NORVASC [Concomitant]
     Indication: BLOOD PRESSURE ABNORMAL
     Route: 065
  9. ZANTAC [Concomitant]
     Indication: GASTRIC DISORDER
     Route: 065
  10. FOSAMAX PLUS D [Concomitant]
     Indication: OSTEOPOROSIS
     Dosage: TOTAL DAILY DOSE: 70 MG  UNIT DOSE: 70 MG
     Route: 065

REACTIONS (5)
  - ABDOMINAL PAIN LOWER [None]
  - BRAIN STEM STROKE [None]
  - CEREBROVASCULAR ACCIDENT [None]
  - HEMIPLEGIA [None]
  - VAGINAL HAEMORRHAGE [None]
